FAERS Safety Report 15084765 (Version 1)
Quarter: 2018Q2

REPORT INFORMATION
  Report Type: Spontaneous
  Country: US (occurrence: US)
  Receive Date: 20180608
  Receipt Date: 20180608
  Transmission Date: 20180711
  Serious: Yes (Hospitalization, Other)
  Sender: FDA-Public Use
  Company Number: None

PATIENT
  Age: 57 Year
  Sex: Female

DRUGS (2)
  1. NIVOLUMAB [Suspect]
     Active Substance: NIVOLUMAB
     Indication: METASTATIC RENAL CELL CARCINOMA
     Route: 042
     Dates: start: 20180510, end: 20180523
  2. NIVOLUMAB [Suspect]
     Active Substance: NIVOLUMAB
     Indication: CLEAR CELL RENAL CELL CARCINOMA
     Route: 042
     Dates: start: 20180510, end: 20180523

REACTIONS (7)
  - Arthralgia [None]
  - Tachycardia [None]
  - Dyspnoea [None]
  - Contusion [None]
  - Oedema [None]
  - Pneumonitis [None]
  - Joint swelling [None]

NARRATIVE: CASE EVENT DATE: 20180607
